FAERS Safety Report 15460744 (Version 1)
Quarter: 2018Q4

REPORT INFORMATION
  Report Type: Spontaneous
  Country: ZA (occurrence: ZA)
  Receive Date: 20181003
  Receipt Date: 20181003
  Transmission Date: 20190204
  Serious: Yes (Other)
  Sender: FDA-Public Use
  Company Number: ZA-PROVELL PHARMACEUTICALS-2055644

PATIENT
  Sex: Female

DRUGS (10)
  1. ALZAM [Suspect]
     Active Substance: ALPRAZOLAM
  2. AMLOC (RANITIDINE HYDROCHLORIDE) [Suspect]
     Active Substance: RANITIDINE HYDROCHLORIDE
  3. ASPEN TRAZODONE [Suspect]
     Active Substance: TRAZODONE HYDROCHLORIDE
  4. CARDICOR [Suspect]
     Active Substance: BISOPROLOL
  5. WELLBUTRIN [Suspect]
     Active Substance: BUPROPION HYDROCHLORIDE
  6. CIPLASYL [Suspect]
     Active Substance: PERINDOPRIL ERBUMINE
  7. EUTHYROX [Suspect]
     Active Substance: LEVOTHYROXINE SODIUM
     Indication: PRODUCT USED FOR UNKNOWN INDICATION
  8. PREMARIN [Suspect]
     Active Substance: ESTROGENS, CONJUGATED
  9. TRAMAZAC CO [Suspect]
     Active Substance: ACETAMINOPHEN\TRAMADOL
  10. KESSAR [Suspect]
     Active Substance: TAMOXIFEN CITRATE

REACTIONS (1)
  - Breast disorder female [Unknown]
